FAERS Safety Report 10720719 (Version 1)
Quarter: 2015Q1

REPORT INFORMATION
  Report Type: Spontaneous
  Country: US (occurrence: US)
  Receive Date: 20150119
  Receipt Date: 20150119
  Transmission Date: 20150721
  Serious: No
  Sender: FDA-Public Use
  Company Number: US-BRACCO-007662

PATIENT
  Age: 65 Year
  Sex: Male

DRUGS (9)
  1. ALEVE [Concomitant]
     Active Substance: NAPROXEN SODIUM
  2. SINOGRAFIN [Suspect]
     Active Substance: DIATRIZOATE MEGLUMINE\IODIPAMIDE MEGLUMINE
     Indication: FACE AND MOUTH X-RAY
     Dosage: 2-3 ML EACH SIDE
     Dates: start: 20120213, end: 20120213
  3. DEXILANT [Concomitant]
     Active Substance: DEXLANSOPRAZOLE
  4. ALL OTHER THERAPEUTIC PRODUCTS [Concomitant]
     Active Substance: UNSPECIFIED INGREDIENT
     Dates: start: 20120213, end: 20120213
  5. FISH OIL [Concomitant]
     Active Substance: FISH OIL
     Dosage: 1,200-144-216 MG
  6. LIPITOR [Concomitant]
     Active Substance: ATORVASTATIN CALCIUM
  7. SINOGRAFIN [Suspect]
     Active Substance: DIATRIZOATE MEGLUMINE\IODIPAMIDE MEGLUMINE
     Indication: PRODUCT USED FOR UNKNOWN INDICATION
     Dosage: 2-3 ML EACH SIDE
     Dates: start: 20120213, end: 20120213
  8. ASPIRIN. [Concomitant]
     Active Substance: ASPIRIN
  9. METOPROLOL TARTRATE. [Concomitant]
     Active Substance: METOPROLOL TARTRATE

REACTIONS (1)
  - Ocular hyperaemia [Unknown]

NARRATIVE: CASE EVENT DATE: 20120213
